FAERS Safety Report 11070810 (Version 1)
Quarter: 2015Q2

REPORT INFORMATION
  Report Type: Spontaneous
  Country: US (occurrence: US)
  Receive Date: 20150428
  Receipt Date: 20150428
  Transmission Date: 20150821
  Serious: No
  Sender: FDA-Public Use
  Company Number: US-AMGEN-USASP2015040337

PATIENT
  Age: 45 Year
  Sex: Female

DRUGS (2)
  1. ENBREL [Suspect]
     Active Substance: ETANERCEPT
     Indication: RHEUMATOID ARTHRITIS
     Dosage: 50 MG, QWK
     Route: 058
  2. ENBREL [Suspect]
     Active Substance: ETANERCEPT
     Indication: ANKYLOSING SPONDYLITIS

REACTIONS (8)
  - Malaise [Unknown]
  - Swelling face [Unknown]
  - Muscle tightness [Unknown]
  - Wrong technique in drug usage process [Unknown]
  - Injection site haemorrhage [Unknown]
  - Neck pain [Unknown]
  - Headache [Unknown]
  - Herpes virus infection [Unknown]
